FAERS Safety Report 6580626-X (Version None)
Quarter: 2010Q1

REPORT INFORMATION
  Report Type: 
  Country: None (occurrence: None)
  Receive Date: 20100212
  Receipt Date: 20100208
  Transmission Date: 20100710
  Serious: Yes (Hospitalization, Other)
  Sender: FDA-Public Use
  Company Number: US-BAYER-201013585NA

PATIENT
  Sex: Female

DRUGS (1)
  1. YAZ [Suspect]
     Indication: DRUG USE FOR UNKNOWN INDICATION
     Route: 048
     Dates: start: 20070201

REACTIONS (5)
  - ABDOMINAL PAIN [None]
  - CARDIAC DISORDER [None]
  - DEPRESSION [None]
  - NAUSEA [None]
  - PANIC ATTACK [None]
